FAERS Safety Report 7210230-1 (Version None)
Quarter: 2010Q4

REPORT INFORMATION
  Report Type: 
  Country: None (occurrence: None)
  Receive Date: 20101227
  Receipt Date: 20101215
  Transmission Date: 20110411
  Serious: Yes (Hospitalization, Other)
  Sender: FDA-Public Use
  Company Number: TIF2010A00140

PATIENT
  Sex: Female

DRUGS (2)
  1. UNSPECIFIED PROTON PUMP INHIBITOR (PROTON PUMP INHIBITORS) [Suspect]
     Indication: PRODUCT USED FOR UNKNOWN INDICATION
  2. SEREUPIN (PAROXETINE HYDROCHLORIDE) [Suspect]
     Indication: PRODUCT USED FOR UNKNOWN INDICATION

REACTIONS (2)
  - MULTIPLE DRUG OVERDOSE INTENTIONAL [None]
  - SUICIDE ATTEMPT [None]
